FAERS Safety Report 23667851 (Version 2)
Quarter: 2024Q1

REPORT INFORMATION
  Report Type: Report from Study
  Country: PE (occurrence: PE)
  Receive Date: 20240325
  Receipt Date: 20240331
  Transmission Date: 20240410
  Serious: Yes (Other)
  Sender: FDA-Public Use
  Company Number: PE-AMGEN-PERSL2024058598

PATIENT
  Age: 36 Year
  Sex: Female

DRUGS (1)
  1. ADALIMUMAB [Suspect]
     Active Substance: ADALIMUMAB\ISOPROPYL ALCOHOL
     Indication: Axial spondyloarthritis
     Dosage: 40 MILLIGRAM, Q2WK
     Route: 058
     Dates: start: 20230417

REACTIONS (4)
  - Immunosuppression [Recovered/Resolved]
  - Haemoglobin decreased [Recovered/Resolved]
  - Influenza [Recovered/Resolved]
  - Dyspnoea [Recovered/Resolved]

NARRATIVE: CASE EVENT DATE: 20240201
